FAERS Safety Report 9790096 (Version 1)
Quarter: 2013Q4

REPORT INFORMATION
  Report Type: Spontaneous
  Country: US (occurrence: None)
  Receive Date: 20131230
  Receipt Date: 20131230
  Transmission Date: 20140711
  Serious: Yes (Hospitalization)
  Sender: FDA-Public Use
  Company Number: None

PATIENT
  Age: 59 Year
  Sex: Female
  Weight: 107.05 kg

DRUGS (10)
  1. N-PLATE [Suspect]
     Indication: IMMUNE THROMBOCYTOPENIC PURPURA
     Route: 058
  2. AMINOCAPROIC ACID [Concomitant]
  3. ARMOUR THYROID [Concomitant]
  4. AZELASTINE-FLUTICASONE [Concomitant]
  5. B-COMPLEX VITAMIN [Concomitant]
  6. FOLIC ACID [Concomitant]
  7. HYDROCODONE/APAP [Concomitant]
  8. IRON [Concomitant]
  9. LEXAPRO [Concomitant]
  10. RESTORIL [Concomitant]

REACTIONS (4)
  - Upper respiratory tract infection [None]
  - Quality of life decreased [None]
  - Impaired work ability [None]
  - No therapeutic response [None]
